FAERS Safety Report 18501861 (Version 20)
Quarter: 2021Q3

REPORT INFORMATION
  Report Type: Spontaneous
  Country: CZ (occurrence: CZ)
  Receive Date: 20201113
  Receipt Date: 20210729
  Transmission Date: 20211014
  Serious: Yes (Hospitalization, Other)
  Sender: FDA-Public Use
  Company Number: CZ-BRISTOL-MYERS SQUIBB COMPANY-BMS-2020-094630

PATIENT
  Age: 86 Year
  Sex: Female

DRUGS (61)
  1. ELIQUIS [Suspect]
     Active Substance: APIXABAN
     Indication: ANTICOAGULANT THERAPY
     Dosage: 5 MILLIGRAM, BID
     Route: 048
  2. NOVALGIN [CAFFEINE;PARACETAMOL;PROPYPHENAZONE] [Interacting]
     Active Substance: ACETAMINOPHEN\CAFFEINE\PROPYPHENAZONE
     Indication: HYPERTENSION
     Dosage: 500 MILLIGRAM, BID
     Route: 065
  3. PREDNISONE. [Interacting]
     Active Substance: PREDNISONE
     Dosage: 2?0?0
     Route: 065
  4. NOVALGIN [CAFFEINE;PARACETAMOL;PROPYPHENAZONE] [Interacting]
     Active Substance: ACETAMINOPHEN\CAFFEINE\PROPYPHENAZONE
     Indication: HYPERTENSION
     Dosage: 500 MILLIGRAM, BID
     Route: 065
  5. OXAZEPAM. [Interacting]
     Active Substance: OXAZEPAM
     Indication: DRUG ABUSE
     Dosage: OVERUSED
     Route: 065
  6. HYPNOGEN [Interacting]
     Active Substance: ZOLPIDEM TARTRATE
     Indication: DRUG ABUSE
     Dosage: UNK
     Route: 065
  7. IBALGIN [Interacting]
     Active Substance: IBUPROFEN
     Indication: PAIN
     Dosage: UNK
     Route: 065
  8. SODIUM PICOSULFATE [Suspect]
     Active Substance: SODIUM PICOSULFATE
     Indication: CONSTIPATION
     Dosage: UNK
     Route: 065
  9. AGEN [Interacting]
     Active Substance: AMLODIPINE BESYLATE
     Indication: HYPERTENSION
     Dosage: 5 MILLIGRAM, QD
     Route: 048
  10. GUTTALAX [BISACODYL] [Interacting]
     Active Substance: BISACODYL
     Indication: CONSTIPATION
     Dosage: 10?20 GTT IN THE EVENING
     Route: 065
  11. METAMIZOLE [Interacting]
     Active Substance: METAMIZOLE
     Indication: POST HERPETIC NEURALGIA
  12. TRAZODONE [Suspect]
     Active Substance: TRAZODONE HYDROCHLORIDE
     Indication: PRODUCT USED FOR UNKNOWN INDICATION
     Dosage: UNK
     Route: 065
  13. PANTOPRAZOLE [Suspect]
     Active Substance: PANTOPRAZOLE
     Indication: NAUSEA
     Dosage: 10 MILLIGRAM
     Route: 048
  14. EUTHYROX [Interacting]
     Active Substance: LEVOTHYROXINE SODIUM
     Indication: AUTOIMMUNE THYROIDITIS
     Dosage: 100 MICROGRAM, QD
     Route: 065
  15. STILNOX [Interacting]
     Active Substance: ZOLPIDEM TARTRATE
     Indication: DRUG ABUSE
     Dosage: OVERUSED
     Route: 065
  16. CALCIUM/VITAMIN D3 [Suspect]
     Active Substance: CALCIUM\CHOLECALCIFEROL
     Indication: CALCIUM DEFICIENCY
     Dosage: UNK
     Route: 065
  17. MELOXICAM. [Suspect]
     Active Substance: MELOXICAM
     Indication: POST HERPETIC NEURALGIA
  18. METAMIZOLE [Interacting]
     Active Substance: METAMIZOLE
     Indication: HYPERTENSION
     Dosage: 500 MILLIGRAM, BID
     Route: 048
     Dates: start: 2015
  19. LEVOTHYROXINE. [Suspect]
     Active Substance: LEVOTHYROXINE
     Indication: AUTOIMMUNE THYROIDITIS
     Dosage: 100 MICROGRAM
     Route: 048
  20. CHONDROITIN SULFATE [Suspect]
     Active Substance: CHONDROITIN SULFATE (BOVINE)
     Indication: RHEUMATOID ARTHRITIS
     Dosage: UNK
     Route: 065
  21. DUROGESIC [Suspect]
     Active Substance: FENTANYL
     Indication: PAIN
     Dosage: 25 MICROGRAM/H A 72 HOURS
     Route: 062
     Dates: start: 2015
  22. ROSUCARD [Interacting]
     Active Substance: ROSUVASTATIN CALCIUM
     Indication: PRODUCT USED FOR UNKNOWN INDICATION
     Dosage: 20 MILLIGRAM, QD
     Route: 048
  23. CONTROLOC [Interacting]
     Active Substance: PANTOPRAZOLE SODIUM
     Indication: NAUSEA
     Dosage: 20 MILLIGRAM, QD
     Route: 048
  24. ORAMELLOX [Interacting]
     Active Substance: MELOXICAM
     Indication: PAIN
     Dosage: 1 DOSAGE FORM, QWK
     Route: 048
     Dates: start: 2015
  25. ORAMELLOX [Interacting]
     Active Substance: MELOXICAM
     Dosage: 15 MILLIGRAM, TAKEN APPROXIMATELY 3 TIMES PER WEEK
     Route: 048
  26. TRAMADOL. [Interacting]
     Active Substance: TRAMADOL
     Indication: PRODUCT USED FOR UNKNOWN INDICATION
     Dosage: OVERUSED
     Route: 048
  27. BETALOC ZOK [Interacting]
     Active Substance: METOPROLOL SUCCINATE
     Indication: HYPERTENSION
     Dosage: 25 MILLIGRAM, QD
     Route: 048
  28. CARDILAN [MAGNESIUM ASPARTATE;POTASSIUM ASPARTATE] [Interacting]
     Active Substance: MAGNESIUM ASPARTATE\POTASSIUM ASPARTATE
     Indication: PRODUCT USED FOR UNKNOWN INDICATION
     Dosage: UNK
     Route: 065
  29. TELMISARTAN. [Suspect]
     Active Substance: TELMISARTAN
     Indication: HYPERTENSION
     Dosage: UNK
     Route: 048
  30. MELOXICAM. [Suspect]
     Active Substance: MELOXICAM
     Indication: PAIN
     Dosage: 15 MILLIGRAM
     Route: 065
     Dates: start: 2015
  31. PANTOPRAZOLE [Suspect]
     Active Substance: PANTOPRAZOLE
     Dosage: 20 MILLIGRAM
     Route: 065
  32. PREGABALIN. [Concomitant]
     Active Substance: PREGABALIN
     Indication: POST HERPETIC NEURALGIA
     Dosage: UNK
     Route: 065
  33. PREDNISONE. [Interacting]
     Active Substance: PREDNISONE
     Indication: STEROID THERAPY
     Dosage: 5 MILLIGRAM, QD
     Route: 048
  34. TEZEO HCT [Suspect]
     Active Substance: HYDROCHLOROTHIAZIDE\TELMISARTAN
     Indication: PRODUCT USED FOR UNKNOWN INDICATION
     Dosage: 80 MG/12.5 MG, ONE DOSAGE FORM DAILY
     Route: 048
  35. ROSUVASTATIN. [Suspect]
     Active Substance: ROSUVASTATIN
     Indication: PRODUCT USED FOR UNKNOWN INDICATION
     Dosage: 20 MILLIGRAM
     Route: 065
  36. PARACETAMOL [Suspect]
     Active Substance: ACETAMINOPHEN
     Indication: PAIN
     Dosage: UNK
     Route: 065
  37. GUTTALAX [SODIUM PICOSULFATE] [Interacting]
     Active Substance: SODIUM PICOSULFATE
     Indication: CONSTIPATION
     Dosage: 10 TO 20 GTT IN THE EVENING
     Route: 065
  38. METHOTREXATE. [Interacting]
     Active Substance: METHOTREXATE
     Indication: RHEUMATOID ARTHRITIS
     Dosage: 10 MILLIGRAM, ONCE A WEEK ON SUNDAY
     Route: 048
     Dates: start: 2010
  39. PANADOL [Interacting]
     Active Substance: ACETAMINOPHEN
     Indication: PAIN
     Dosage: 750 MG DAILY (1.5 TABLETS 3?4 TIMES A DAY)
     Route: 048
     Dates: start: 2015
  40. CONDROSULF [Interacting]
     Active Substance: SODIUM CHONDROITIN SULFATE
     Indication: CONSTIPATION
     Dosage: 800 MILLIGRAM, QD
     Route: 048
  41. CONDROSULF [Interacting]
     Active Substance: SODIUM CHONDROITIN SULFATE
     Indication: RHEUMATOID ARTHRITIS
  42. TEZEO [Interacting]
     Active Substance: TELMISARTAN
     Indication: HYPERTENSION
     Dosage: 80/12.5 MG , QD, ONE DOSAGE FORM DAILY
     Route: 048
  43. CARDILAN [NICOFURANOSE] [Interacting]
     Active Substance: NICOFURANOSE
     Indication: ENCEPHALOPATHY
     Dosage: UNK UNK, QD
     Route: 048
  44. OMEPRAZOLE. [Suspect]
     Active Substance: OMEPRAZOLE
     Indication: PRODUCT USED FOR UNKNOWN INDICATION
     Dosage: UNK
     Route: 065
  45. AMLODIPINE BESILATE [Suspect]
     Active Substance: AMLODIPINE BESYLATE
     Indication: HYPERTENSION
     Dosage: 5 MILLIGRAM
     Route: 048
  46. POTASSIUM ASPARTATE [Interacting]
     Active Substance: POTASSIUM ASPARTATE
     Indication: PRODUCT USED FOR UNKNOWN INDICATION
     Route: 065
  47. DUROGESIC [Interacting]
     Active Substance: FENTANYL
     Indication: POST HERPETIC NEURALGIA
     Dosage: 25 MICROGRAM,Q72H
     Route: 062
     Dates: start: 2015
  48. CALCICHEW D3 [Interacting]
     Active Substance: CALCIUM\CHOLECALCIFEROL
     Indication: CALCIUM DEFICIENCY
     Dosage: 1 DOSAGE FORM, QD
     Route: 048
  49. GUAJACURAN [Suspect]
     Active Substance: GUAIFENESIN
     Indication: PRODUCT USED FOR UNKNOWN INDICATION
     Dosage: UNK
     Route: 065
  50. CAPTOPRIL. [Suspect]
     Active Substance: CAPTOPRIL
     Indication: HYPERTENSION
     Dosage: UNK
     Route: 065
  51. CORDARONE [Interacting]
     Active Substance: AMIODARONE HYDROCHLORIDE
     Indication: ATRIAL FIBRILLATION
     Dosage: 200 MILLIGRAM, QD
     Route: 048
  52. ACIDUM FOLICUM [Interacting]
     Active Substance: FOLIC ACID
     Indication: PRODUCT USED FOR UNKNOWN INDICATION
     Dosage: ONCE A DAY ON MONDAY
     Route: 048
  53. PREDNISONE. [Interacting]
     Active Substance: PREDNISONE
     Dosage: UNK UNK, QD (1?0?0)
     Route: 065
  54. PREDNISON LECIVA [Suspect]
     Active Substance: PREDNISONE
     Indication: STEROID THERAPY
     Dosage: 5 MILLIGRAM, QD
     Route: 048
  55. FENTANYL. [Suspect]
     Active Substance: FENTANYL
     Indication: PRODUCT USED FOR UNKNOWN INDICATION
     Dosage: UNK
     Route: 065
  56. RAMIPRIL. [Suspect]
     Active Substance: RAMIPRIL
     Indication: PRODUCT USED FOR UNKNOWN INDICATION
     Dosage: UNK
     Route: 065
  57. AMIODARONE [Suspect]
     Active Substance: AMIODARONE
     Indication: ATRIAL FIBRILLATION
     Dosage: 200 MILLIGRAM
     Route: 048
  58. METOPROLOL. [Suspect]
     Active Substance: METOPROLOL
     Indication: HYPERTENSION
     Dosage: 25 MILLIGRAM
     Route: 048
  59. DONEPEZIL HCL [Suspect]
     Active Substance: DONEPEZIL HYDROCHLORIDE
     Indication: PRODUCT USED FOR UNKNOWN INDICATION
     Dosage: UNK
     Route: 065
  60. ALPRAZOLAM. [Suspect]
     Active Substance: ALPRAZOLAM
     Indication: PRODUCT USED FOR UNKNOWN INDICATION
     Dosage: UNK
     Route: 065
  61. MAGNESIUM ASPARTATE [Interacting]
     Active Substance: MAGNESIUM ASPARTATE
     Indication: PRODUCT USED FOR UNKNOWN INDICATION
     Dosage: 1 DOSAGE FORM, QD
     Route: 048

REACTIONS (42)
  - Urinary retention [Recovered/Resolved]
  - Hypertension [Recovering/Resolving]
  - Oxygen saturation decreased [Recovered/Resolved]
  - Apathy [Recovered/Resolved]
  - Fracture [Recovered/Resolved]
  - Restlessness [Recovered/Resolved]
  - Condition aggravated [Recovered/Resolved]
  - Anxiety [Recovered/Resolved]
  - Delirium [Recovered/Resolved]
  - Head discomfort [Recovered/Resolved]
  - Atrial fibrillation [Recovered/Resolved]
  - Hypokalaemia [Recovered/Resolved]
  - Pelvic fracture [Recovered/Resolved]
  - Dizziness [Recovered/Resolved]
  - Dehydration [Recovered/Resolved]
  - Bedridden [Recovered/Resolved]
  - Poor quality sleep [Recovered/Resolved]
  - Contusion [Recovered/Resolved]
  - Sleep disorder [Recovering/Resolving]
  - Affect lability [Recovered/Resolved]
  - Confusional state [Recovered/Resolved]
  - Listless [Recovering/Resolving]
  - General physical health deterioration [Recovering/Resolving]
  - Hypoacusis [Recovered/Resolved]
  - Loss of personal independence in daily activities [Recovered/Resolved]
  - Prescription drug used without a prescription [Unknown]
  - Cognitive disorder [Recovered/Resolved]
  - Hyponatraemia [Recovered/Resolved]
  - Liver function test increased [Recovered/Resolved]
  - Encephalopathy [Recovering/Resolving]
  - Discomfort [Recovered/Resolved]
  - Immobile [Recovered/Resolved]
  - Medication error [Recovered/Resolved]
  - Reduced facial expression [Recovered/Resolved]
  - Nausea [Recovered/Resolved]
  - Fall [Recovering/Resolving]
  - Incorrect dose administered [Unknown]
  - Vertigo [Recovered/Resolved]
  - Mobility decreased [Recovered/Resolved]
  - Foreign body [Recovered/Resolved]
  - Drug interaction [Recovered/Resolved]
  - Mood swings [Recovered/Resolved]

NARRATIVE: CASE EVENT DATE: 2018
